FAERS Safety Report 4818567-8 (Version None)
Quarter: 2005Q4

REPORT INFORMATION
  Report Type: 
  Country: None (occurrence: None)
  Receive Date: 20051031
  Receipt Date: 20051014
  Transmission Date: 20060501
  Serious: Yes (Other)
  Sender: FDA-Public Use
  Company Number: 12727

PATIENT
  Age: 61 Year
  Sex: Male

DRUGS (9)
  1. LEUCOVORIN CALCIUM [Suspect]
     Dosage: 300 MG PER_CYCLE IV
     Route: 042
     Dates: start: 20050808, end: 20050808
  2. FLUOROURACIL [Suspect]
     Dosage: 2400 MG PER_CYCLE IV
     Route: 042
     Dates: start: 20050808, end: 20050809
  3. SOLU-MEDROL [Suspect]
     Dosage: 125 MG QD IV
     Route: 042
     Dates: start: 20050808, end: 20050810
  4. ZOFRAN [Suspect]
     Dosage: 8 MG QD IV
     Route: 042
     Dates: start: 20050808, end: 20050810
  5. ELOXATIN [Suspect]
     Dosage: 150 MG PER_CYCLE
     Dates: start: 20050808, end: 20050808
  6. GLUCOPHAGE /00082701/ [Concomitant]
  7. CREON /00014701/ [Concomitant]
  8. NEXIUM [Concomitant]
  9. FERRUM HAUSMANN /00023505/ [Concomitant]

REACTIONS (1)
  - SINUS BRADYCARDIA [None]
